FAERS Safety Report 5991704-8 (Version None)
Quarter: 2008Q4

REPORT INFORMATION
  Report Type: 
  Country: None (occurrence: None)
  Receive Date: 20081211
  Receipt Date: 20081208
  Transmission Date: 20090506
  Serious: Yes (Death, Life-Threatening)
  Sender: FDA-Public Use
  Company Number: US-EISAI MEDICAL RESEARCH-E2020-03713-CLI-US

PATIENT
  Sex: Female
  Weight: 48 kg

DRUGS (1)
  1. DONEPEZIL HCL [Suspect]
     Indication: DISTURBANCE IN ATTENTION
     Route: 048
     Dates: start: 20080916, end: 20081002

REACTIONS (2)
  - NEUTROPENIA [None]
  - SEPTIC SHOCK [None]
